FAERS Safety Report 4887471-1 (Version None)
Quarter: 2006Q1

REPORT INFORMATION
  Report Type: 
  Country: None (occurrence: None)
  Receive Date: 20060118
  Receipt Date: 20060109
  Transmission Date: 20060701
  Serious: No
  Sender: FDA-Public Use
  Company Number: 2006-137023-NL

PATIENT
  Age: 46 Year
  Sex: Female

DRUGS (5)
  1. MIRTAZAPINE [Suspect]
     Indication: DEPRESSION
     Dosage: 45 MG; ORAL
     Route: 048
     Dates: start: 20051122, end: 20051214
  2. SERTRALINE [Concomitant]
  3. CO-CODAMOL [Concomitant]
  4. TRAMADOL HCL [Concomitant]
  5. SALBUTAMOL [Concomitant]

REACTIONS (5)
  - ARTHRALGIA [None]
  - CONDITION AGGRAVATED [None]
  - FACE OEDEMA [None]
  - OEDEMA PERIPHERAL [None]
  - ORTHOPNOEA [None]
